FAERS Safety Report 7889676-4 (Version None)
Quarter: 2011Q4

REPORT INFORMATION
  Report Type: 
  Country: None (occurrence: None)
  Receive Date: 20111103
  Receipt Date: 20100915
  Transmission Date: 20120403
  Serious: No
  Sender: FDA-Public Use
  Company Number: US-BAYER-201033793NA

PATIENT
  Sex: Male
  Weight: 76.19 kg

DRUGS (2)
  1. BARIUM [Concomitant]
  2. ULTRAVIST 300 [Suspect]
     Indication: COMPUTERISED TOMOGRAM
     Dosage: UNK
     Route: 042
     Dates: start: 20100914

REACTIONS (1)
  - RASH GENERALISED [None]
